FAERS Safety Report 14509457 (Version 1)
Quarter: 2018Q1

REPORT INFORMATION
  Report Type: Spontaneous
  Country: US (occurrence: US)
  Receive Date: 20180207
  Receipt Date: 20180207
  Transmission Date: 20180509
  Serious: Yes (Death)
  Sender: FDA-Public Use
  Company Number: None

PATIENT
  Age: 46 Year
  Sex: Male

DRUGS (1)
  1. REVLIMID [Suspect]
     Active Substance: LENALIDOMIDE
     Indication: NON-HODGKIN^S LYMPHOMA
     Route: 048
     Dates: start: 20180113, end: 20180124

REACTIONS (4)
  - Graft versus host disease in lung [None]
  - Graft versus host disease in eye [None]
  - Graft versus host disease in liver [None]
  - Graft versus host disease in skin [None]

NARRATIVE: CASE EVENT DATE: 20180201
